FAERS Safety Report 26122394 (Version 1)
Quarter: 2025Q4

REPORT INFORMATION
  Report Type: Spontaneous
  Country: GB (occurrence: GB)
  Receive Date: 20251204
  Receipt Date: 20251204
  Transmission Date: 20260117
  Serious: Yes (Disabling, Other)
  Sender: SANDOZ
  Company Number: GB-SANDOZ-SDZ2025GB091176

PATIENT
  Sex: Male

DRUGS (2)
  1. TACROLIMUS [Suspect]
     Active Substance: TACROLIMUS
     Indication: Product used for unknown indication
     Dosage: 0.5 MG
     Route: 065
  2. TACROLIMUS [Suspect]
     Active Substance: TACROLIMUS
     Indication: Product used for unknown indication
     Dosage: 5 MG, QD
     Route: 048

REACTIONS (3)
  - Disability [Recovered/Resolved]
  - Movement disorder [Recovered/Resolved]
  - Walking aid user [Recovered/Resolved]
